FAERS Safety Report 4309824-2 (Version None)
Quarter: 2004Q1

REPORT INFORMATION
  Report Type: 
  Country: None (occurrence: None)
  Receive Date: 20040301
  Receipt Date: 20031117
  Transmission Date: 20041129
  Serious: Yes (Death)
  Sender: FDA-Public Use
  Company Number: 1482

PATIENT
  Sex: Male

DRUGS (1)
  1. AVINZA [Suspect]

REACTIONS (4)
  - ASPIRATION [None]
  - PNEUMONIA [None]
  - PYREXIA [None]
  - VOMITING [None]
